FAERS Safety Report 5383715-0 (Version None)
Quarter: 2007Q3

REPORT INFORMATION
  Report Type: 
  Country: None (occurrence: None)
  Receive Date: 20070706
  Receipt Date: 20070620
  Transmission Date: 20080115
  Serious: Yes (Disabling)
  Sender: FDA-Public Use
  Company Number: DSA_30144_2007

PATIENT
  Sex: Male
  Weight: 104.3273 kg

DRUGS (4)
  1. VASOTEC [Suspect]
     Indication: BLOOD PRESSURE INCREASED
     Dosage: (20 MG BID ORAL)
     Route: 048
     Dates: start: 20070613, end: 20070615
  2. VASOTEC [Suspect]
     Dosage: (DF)
     Dates: end: 20070612
  3. VASOTEC [Suspect]
     Indication: BLOOD PRESSURE INCREASED
     Dosage: (20 MG BID ORAL)
     Route: 048
     Dates: start: 20070613, end: 20070616
  4. VASOTEC [Suspect]
     Dosage: (DF)
     Dates: start: 20070601

REACTIONS (10)
  - ASTHENIA [None]
  - DISEASE RECURRENCE [None]
  - DYSPNOEA [None]
  - HEART RATE INCREASED [None]
  - HYPOGLYCAEMIA [None]
  - IRRITABILITY [None]
  - MALAISE [None]
  - PHARMACEUTICAL PRODUCT COMPLAINT [None]
  - SINUS HEADACHE [None]
  - TENSION [None]
